FAERS Safety Report 7074979-6 (Version None)
Quarter: 2010Q4

REPORT INFORMATION
  Report Type: 
  Country: None (occurrence: None)
  Receive Date: 20101029
  Receipt Date: 20100115
  Transmission Date: 20110411
  Serious: No
  Sender: FDA-Public Use
  Company Number: US-WYE-H12680209

PATIENT
  Age: 70 Year
  Sex: Female
  Weight: 51.3 kg

DRUGS (2)
  1. ALAVERT [Suspect]
     Indication: HYPERSENSITIVITY
     Route: 048
     Dates: start: 20090101, end: 20091205
  2. ALAVERT [Suspect]
     Route: 048
     Dates: start: 20091206, end: 20091214

REACTIONS (2)
  - DRUG EFFECT DECREASED [None]
  - OVERDOSE [None]
